FAERS Safety Report 14824058 (Version 4)
Quarter: 2018Q3

REPORT INFORMATION
  Report Type: Report from Study
  Country: ES (occurrence: ES)
  Receive Date: 20180428
  Receipt Date: 20180925
  Transmission Date: 20181010
  Serious: Yes (Hospitalization)
  Sender: FDA-Public Use
  Company Number: ES-UCBSA-2017046315

PATIENT
  Age: 68 Year
  Sex: Male

DRUGS (1)
  1. ROTIGOTINE [Suspect]
     Active Substance: ROTIGOTINE
     Indication: PARKINSON^S DISEASE
     Dosage: 8 MG, ONCE DAILY (QD)

REACTIONS (8)
  - Dysphonia [Not Recovered/Not Resolved]
  - Product adhesion issue [Unknown]
  - Application site erythema [Unknown]
  - Freezing phenomenon [Not Recovered/Not Resolved]
  - Somnolence [Not Recovered/Not Resolved]
  - Application site pruritus [Unknown]
  - Pruritus [Recovering/Resolving]
  - Amnesia [Unknown]

NARRATIVE: CASE EVENT DATE: 20180418
